FAERS Safety Report 4697355-X (Version None)
Quarter: 2005Q2

REPORT INFORMATION
  Report Type: 
  Country: None (occurrence: None)
  Receive Date: 20050621
  Receipt Date: 20050429
  Transmission Date: 20051028
  Serious: Yes (Hospitalization, Disabling, Other)
  Sender: FDA-Public Use
  Company Number: 2005067120

PATIENT
  Age: 50 Year
  Sex: Male
  Weight: 81.6475 kg

DRUGS (14)
  1. CELEBREX [Suspect]
     Indication: ARTHRITIS
     Dosage: 100 MG (100 MG, 1 IN 1 D), ORAL
     Route: 048
  2. NAPROXEN [Suspect]
     Indication: PAIN
     Dosage: ORAL
     Route: 048
  3. PROAMATINE [Concomitant]
  4. HYDROCHLOROTHIAZIDE [Concomitant]
  5. FOLIC ACID [Concomitant]
  6. LIPITOR [Concomitant]
  7. EFFEXOR [Concomitant]
  8. OXYCONTIN [Concomitant]
  9. ASPIRIN [Concomitant]
  10. PROZAC [Concomitant]
  11. NEXIUM [Concomitant]
  12. STOOL SOFTENER (DOCUSATE SODIUM) [Concomitant]
  13. VIAGRA [Concomitant]
  14. TRAZODONE (TRAZODONE) [Concomitant]

REACTIONS (8)
  - CARDIAC DISORDER [None]
  - CEREBROVASCULAR ACCIDENT [None]
  - FATIGUE [None]
  - NEOPLASM MALIGNANT [None]
  - PAIN [None]
  - PARALYSIS [None]
  - RECURRENT CANCER [None]
  - RENAL DISORDER [None]
